FAERS Safety Report 9321859 (Version 1)
Quarter: 2013Q2

REPORT INFORMATION
  Report Type: Report from Study
  Country: US (occurrence: US)
  Receive Date: 20130531
  Receipt Date: 20130531
  Transmission Date: 20140414
  Serious: No
  Sender: FDA-Public Use
  Company Number: US-ABBOTT-13P-163-1038334-00

PATIENT
  Age: 40 Year
  Sex: Female
  Weight: 67.19 kg

DRUGS (3)
  1. MARINOL [Suspect]
     Indication: MUSCLE SPASMS
     Dosage: 10 MG AND 5 MG AT BEDTIME
     Dates: start: 2009, end: 201210
  2. ZOLOFT [Concomitant]
     Indication: DEPRESSION
  3. XANAX [Concomitant]
     Indication: ANXIETY

REACTIONS (3)
  - Muscle spasms [Not Recovered/Not Resolved]
  - Sensation of heaviness [Not Recovered/Not Resolved]
  - Off label use [Unknown]
